FAERS Safety Report 11465295 (Version 2)
Quarter: 2015Q3

REPORT INFORMATION
  Report Type: Report from Study
  Country: CA (occurrence: CA)
  Receive Date: 20150907
  Receipt Date: 20150930
  Transmission Date: 20151125
  Serious: Yes (Other)
  Sender: FDA-Public Use
  Company Number: CA-ROCHE-1630821

PATIENT
  Sex: Male

DRUGS (12)
  1. ASPIRIN. [Concomitant]
     Active Substance: ASPIRIN
     Route: 065
  2. ESBRIET [Suspect]
     Active Substance: PIRFENIDONE
     Route: 048
     Dates: start: 20150727
  3. LANTUS [Concomitant]
     Active Substance: INSULIN GLARGINE
     Dosage: 34 UNITS AC BEDTIME
     Route: 065
  4. TECTA [Concomitant]
     Active Substance: PANTOPRAZOLE MAGNESIUM
     Route: 065
  5. EZETROL [Concomitant]
     Active Substance: EZETIMIBE
     Route: 065
  6. HUMALOG [Concomitant]
     Active Substance: INSULIN LISPRO
     Dosage: 24 AC BREAK FAST AND LUNCH, 26 AC DINNER
     Route: 065
  7. AMLODIPINE [Concomitant]
     Active Substance: AMLODIPINE BESYLATE
     Route: 065
  8. DOXAZOSIN [Concomitant]
     Active Substance: DOXAZOSIN\DOXAZOSIN MESYLATE
     Route: 065
  9. ELTROXIN [Concomitant]
     Active Substance: LEVOTHYROXINE
     Route: 065
  10. RAMIPRIL. [Concomitant]
     Active Substance: RAMIPRIL
     Route: 065
  11. ESBRIET [Suspect]
     Active Substance: PIRFENIDONE
     Indication: IDIOPATHIC PULMONARY FIBROSIS
     Route: 048
     Dates: start: 20150720
  12. ESBRIET [Suspect]
     Active Substance: PIRFENIDONE
     Route: 048
     Dates: start: 20150803, end: 20150918

REACTIONS (7)
  - Abnormal dreams [Unknown]
  - Asbestosis [Unknown]
  - Liver function test abnormal [Unknown]
  - Night sweats [Unknown]
  - Abdominal rigidity [Unknown]
  - Abdominal pain upper [Unknown]
  - Blood glucose abnormal [Unknown]
